FAERS Safety Report 25126715 (Version 1)
Quarter: 2025Q1

REPORT INFORMATION
  Report Type: Spontaneous
  Country: GB (occurrence: GB)
  Receive Date: 20250327
  Receipt Date: 20250327
  Transmission Date: 20250409
  Serious: Yes (Hospitalization, Other)
  Sender: AUROBINDO
  Company Number: GB-MHRA-MED-202503122226153670-ZJBYC

PATIENT
  Age: 38 Year
  Sex: Female
  Weight: 89 kg

DRUGS (1)
  1. SUMATRIPTAN [Suspect]
     Active Substance: SUMATRIPTAN
     Indication: Migraine
     Route: 065
     Dates: start: 20250311, end: 20250311

REACTIONS (2)
  - Myoclonus [Recovered/Resolved with Sequelae]
  - Feeling jittery [Recovering/Resolving]

NARRATIVE: CASE EVENT DATE: 20250311
